FAERS Safety Report 4924278-0 (Version None)
Quarter: 2006Q1

REPORT INFORMATION
  Report Type: 
  Country: None (occurrence: None)
  Receive Date: 20060221
  Receipt Date: 20060215
  Transmission Date: 20060701
  Serious: Yes (Hospitalization)
  Sender: FDA-Public Use
  Company Number: S06-USA-00548-01

PATIENT
  Age: 33 Year
  Sex: Male

DRUGS (2)
  1. LEXAPRO [Suspect]
     Indication: DEPRESSION
     Dosage: 20 MG QD PO
     Route: 048
     Dates: start: 20040201, end: 20060212
  2. ALTACE [Suspect]
     Indication: PROTEINURIA
     Dosage: 5 MG QD
     Dates: start: 20051101, end: 20060209

REACTIONS (2)
  - BODY TEMPERATURE INCREASED [None]
  - GLOMERULOSCLEROSIS [None]
